FAERS Safety Report 21395191 (Version 2)
Quarter: 2022Q4

REPORT INFORMATION
  Report Type: Other
  Country: IE (occurrence: None)
  Receive Date: 20220930
  Receipt Date: 20221019
  Transmission Date: 20230113
  Serious: Yes (Other)
  Sender: FDA-Public Use
  Company Number: IE-ROCHE-3186288

PATIENT
  Sex: Female

DRUGS (1)
  1. OCREVUS [Suspect]
     Active Substance: OCRELIZUMAB
     Indication: Product used for unknown indication
     Dosage: 600MGS IN X 2 VIALS 300MGS
     Route: 042

REACTIONS (3)
  - Mobility decreased [Unknown]
  - Nasopharyngitis [Unknown]
  - Influenza like illness [Unknown]
